FAERS Safety Report 7246208-1 (Version None)
Quarter: 2011Q1

REPORT INFORMATION
  Report Type: 
  Country: None (occurrence: None)
  Receive Date: 20110126
  Receipt Date: 20110121
  Transmission Date: 20110831
  Serious: Yes (Other)
  Sender: FDA-Public Use
  Company Number: B0695580A

PATIENT
  Sex: Female

DRUGS (1)
  1. LAMICTAL [Suspect]
     Indication: EPILEPSY
     Route: 065

REACTIONS (7)
  - MOOD ALTERED [None]
  - DRUG INEFFECTIVE [None]
  - CONVULSION [None]
  - WEIGHT INCREASED [None]
  - HYPERSOMNIA [None]
  - IRRITABILITY [None]
  - ASTHENIA [None]
